FAERS Safety Report 8886876 (Version 1)
Quarter: 2012Q4

REPORT INFORMATION
  Report Type: 
  Country: CA (occurrence: CA)
  Receive Date: 20121105
  Receipt Date: 20121105
  Transmission Date: 20130627
  Serious: Yes (Other)
  Sender: FDA-Public Use
  Company Number: CA-PFIZER INC-2012265536

PATIENT
  Sex: Female

DRUGS (24)
  1. CELEBREX [Suspect]
     Dosage: 200 mg, UNK
  2. TIAZAC [Concomitant]
     Dosage: UNK
  3. DIOVAN (VALSARTAN) [Concomitant]
     Dosage: UNK
  4. MOBICOX [Concomitant]
     Dosage: UNK
  5. NOVOHYDRAZIDE [Concomitant]
     Dosage: UNK
  6. PERCOCET [Concomitant]
     Dosage: UNK
  7. NEXIUM [Concomitant]
     Dosage: UNK
  8. STATEX [Concomitant]
     Dosage: UNK
  9. TWINRIX ADULT [Concomitant]
     Dosage: UNK
  10. CYCLOBENZAPRINE [Concomitant]
     Dosage: UNK
  11. NOVOQUININE [Concomitant]
     Dosage: UNK
  12. CETAMIDE [Concomitant]
     Dosage: UNK
  13. APO-PREDNISONE [Concomitant]
     Dosage: UNK
  14. NOVO-RANIDINE [Concomitant]
     Dosage: UNK
  15. BENADRYL [Concomitant]
     Dosage: UNK
  16. TYLENOL [Concomitant]
     Dosage: UNK
  17. CLONAZEPAM [Concomitant]
     Dosage: UNK
  18. DOCUSATE [Concomitant]
     Dosage: UNK
  19. NOVOSEMIDE [Concomitant]
     Dosage: UNK
  20. LYRICA [Concomitant]
     Dosage: UNK
  21. SENOKOT [Concomitant]
     Dosage: UNK
  22. K-DUR [Concomitant]
     Dosage: UNK
  23. CALCITE D [Concomitant]
     Dosage: UNK
  24. NOVODILTAZEM [Concomitant]
     Dosage: UNK

REACTIONS (3)
  - Myocarditis [Unknown]
  - Cough [Unknown]
  - Dyspnoea [Unknown]
